FAERS Safety Report 26211738 (Version 1)
Quarter: 2025Q4

REPORT INFORMATION
  Report Type: Spontaneous
  Country: US (occurrence: US)
  Receive Date: 20251230
  Receipt Date: 20251230
  Transmission Date: 20260118
  Serious: No
  Sender: TOLMAR
  Company Number: US-Tolmar-TLM-2025-09696

PATIENT

DRUGS (3)
  1. ELIGARD [Suspect]
     Active Substance: LEUPROLIDE ACETATE
     Indication: Prostate cancer
     Dosage: BOX: LOT: 15593CUS, EXP: 06-2027.?SERIAL: 3184465778658.?GTIN: 00362935227106.?SYRINGE A: LOT: 15593
  2. ELIGARD [Suspect]
     Active Substance: LEUPROLIDE ACETATE
     Dosage: REPLACEMENT DOSE
  3. DEVICE [Suspect]
     Active Substance: DEVICE
     Indication: Prostate cancer
     Dosage: BOX: LOT: 15593CUS, EXP: 06-2027.?SERIAL: 3184465778658.?GTIN: 00362935227106.?SYRINGE A: LOT: 15593

REACTIONS (2)
  - Intercepted product preparation error [Unknown]
  - Device leakage [Unknown]
